FAERS Safety Report 4376132-3 (Version None)
Quarter: 2004Q2

REPORT INFORMATION
  Report Type: 
  Country: None (occurrence: None)
  Receive Date: 20040611
  Receipt Date: 20040604
  Transmission Date: 20050107
  Serious: Yes (Hospitalization)
  Sender: FDA-Public Use
  Company Number: FR-ROCHE-369961

PATIENT
  Age: 60 Year
  Sex: Female

DRUGS (3)
  1. COPEGUS [Suspect]
     Indication: HEPATITIS C
     Route: 048
  2. PEGASYS [Suspect]
     Indication: HEPATITIS C
     Route: 058
  3. CORTICOTHERAPY [Concomitant]
     Indication: THROMBOCYTOPENIC PURPURA
     Route: 065

REACTIONS (2)
  - GINGIVAL BLEEDING [None]
  - THROMBOCYTOPENIC PURPURA [None]
